FAERS Safety Report 13585405 (Version 1)
Quarter: 2017Q2

REPORT INFORMATION
  Report Type: Spontaneous
  Country: FR (occurrence: FR)
  Receive Date: 20170526
  Receipt Date: 20170526
  Transmission Date: 20170830
  Serious: Yes (Hospitalization)
  Sender: FDA-Public Use
  Company Number: FR-CELGENEUS-FRA-20170506815

PATIENT
  Age: 30 Year
  Sex: Male

DRUGS (2)
  1. SPIROLEPT [Suspect]
     Active Substance: LEPTOSPIRA INTERROGANS
     Indication: IMMUNISATION
     Route: 058
     Dates: start: 20170401, end: 20170401
  2. OTEZLA [Suspect]
     Active Substance: APREMILAST
     Indication: PSORIASIS
     Route: 048
     Dates: start: 20170315, end: 20170415

REACTIONS (1)
  - Cytomegalovirus infection [Recovered/Resolved]

NARRATIVE: CASE EVENT DATE: 20170404
